FAERS Safety Report 7622969-4 (Version None)
Quarter: 2011Q3

REPORT INFORMATION
  Report Type: 
  Country: None (occurrence: None)
  Receive Date: 20110720
  Receipt Date: 20110714
  Transmission Date: 20111222
  Serious: Yes (Death, Hospitalization)
  Sender: FDA-Public Use
  Company Number: DK-JNJFOC-20110205077

PATIENT
  Sex: Female
  Weight: 61 kg

DRUGS (9)
  1. RIMACTANE [Concomitant]
     Indication: LATENT TUBERCULOSIS
     Dates: start: 20100727, end: 20101129
  2. CENTYL [Concomitant]
     Indication: HYPERTENSION
  3. ENBREL [Concomitant]
     Indication: RHEUMATOID ARTHRITIS
     Dates: start: 20100928, end: 20101018
  4. SIMPONI [Suspect]
     Route: 058
     Dates: start: 20101108, end: 20101108
  5. PREDNISOLONE [Concomitant]
     Indication: RHEUMATOID ARTHRITIS
     Dates: start: 20100907, end: 20101128
  6. CORODIL COMP [Concomitant]
     Indication: HYPERTENSION
  7. SIMPONI [Suspect]
     Indication: RHEUMATOID ARTHRITIS
     Route: 058
     Dates: start: 20101108, end: 20101108
  8. HYDROXYCHLOROQUINE SULFATE [Concomitant]
     Indication: RHEUMATOID ARTHRITIS
     Dates: start: 20091027, end: 20101108
  9. PLAVIX [Concomitant]

REACTIONS (2)
  - PSORIASIS [None]
  - PNEUMONIA [None]
